FAERS Safety Report 8563881-6 (Version None)
Quarter: 2012Q3

REPORT INFORMATION
  Report Type: 
  Country: None (occurrence: None)
  Receive Date: 20120718
  Receipt Date: 20120709
  Transmission Date: 20120928
  Serious: Yes (Hospitalization)
  Sender: FDA-Public Use
  Company Number: 28238

PATIENT
  Sex: Female
  Weight: 47.1741 kg

DRUGS (2)
  1. NICOTINE [Concomitant]
  2. GLASSIA [Suspect]
     Indication: ALPHA-1 ANTI-TRYPSIN DEFICIENCY
     Dosage: UNK, EVERY 2 WEEKS, IV
     Route: 042
     Dates: start: 20120401

REACTIONS (2)
  - DEHYDRATION [None]
  - VEIN DISORDER [None]
